FAERS Safety Report 4334103-7 (Version None)
Quarter: 2004Q2

REPORT INFORMATION
  Report Type: 
  Country: None (occurrence: None)
  Receive Date: 20040402
  Receipt Date: 20040318
  Transmission Date: 20050107
  Serious: Yes (Hospitalization)
  Sender: FDA-Public Use
  Company Number: 235639

PATIENT
  Age: 70 Year
  Sex: Female
  Weight: 55 kg

DRUGS (5)
  1. NOVONORM(REPAGLINIDE) TABLET, 1.0MG [Suspect]
     Indication: DIABETES MELLITUS NON-INSULIN-DEPENDENT
     Dosage: 1 MG, TID, PER ORAL
     Route: 048
     Dates: start: 20030706, end: 20030824
  2. INSULIN [Suspect]
     Dosage: IU, SUBCUTANEOUS
     Route: 058
     Dates: start: 20020101, end: 20030824
  3. METOPROLOL SUCCINATE [Concomitant]
  4. CAPTOPRIL [Concomitant]
  5. ASPIRIN [Concomitant]

REACTIONS (4)
  - AMNESIA [None]
  - COMA [None]
  - HYPOGLYCAEMIA [None]
  - MEDICATION ERROR [None]
